FAERS Safety Report 6910038-8 (Version None)
Quarter: 2010Q3

REPORT INFORMATION
  Report Type: 
  Country: None (occurrence: None)
  Receive Date: 20100806
  Receipt Date: 20100802
  Transmission Date: 20110219
  Serious: Yes (Death, Hospitalization)
  Sender: FDA-Public Use
  Company Number: US-CELGENEUS-163-21880-10061961

PATIENT
  Sex: Female

DRUGS (6)
  1. REVLIMID [Suspect]
     Indication: MULTIPLE MYELOMA
     Route: 048
     Dates: start: 20091029, end: 20100126
  2. REVLIMID [Suspect]
     Route: 048
     Dates: start: 20070801
  3. DEXAMETHASONE [Concomitant]
     Indication: MULTIPLE MYELOMA
     Route: 048
  4. OXYCODONE [Concomitant]
     Indication: PAIN
     Route: 048
  5. TRAZODONE [Concomitant]
     Indication: SLEEP DISORDER
     Route: 048
  6. NORVASC [Concomitant]
     Indication: HYPERTENSION
     Route: 048

REACTIONS (2)
  - DEATH [None]
  - DEVICE RELATED INFECTION [None]
